FAERS Safety Report 6429743-5 (Version None)
Quarter: 2009Q4

REPORT INFORMATION
  Report Type: 
  Country: None (occurrence: None)
  Receive Date: 20091103
  Receipt Date: 20091019
  Transmission Date: 20100525
  Serious: No
  Sender: FDA-Public Use
  Company Number: 02100-JPN-07-0071

PATIENT
  Age: 66 Year
  Sex: Male
  Weight: 64.4 kg

DRUGS (13)
  1. PLETAL [Suspect]
     Indication: CEREBRAL INFARCTION
     Dosage: 100 MG, BID; ORAL
     Route: 048
     Dates: start: 20050906, end: 20070205
  2. MEDET (METFORMIN HYDROCHLORIDE) TABLET [Concomitant]
  3. EUGLUCON (GLIBENCLAMIDE) TABLET [Concomitant]
  4. ADONA (CARBAZOCHROME SODIUM SULFONATE) TABLET [Concomitant]
  5. SEPAMIT-R (NIFEDIPINE) CAPSULE [Concomitant]
  6. MIKELAN OPHTHALMIC SOLUTION (CARTEOLOL HYDROCHLORIDE) EYE DROPS [Concomitant]
  7. AZOPT (BRINZOLAMIDE) EYE DROPS [Concomitant]
  8. GASTER D (FAMOTIDINE) TABLET [Concomitant]
  9. DOXAZOSIN MESYLATE [Concomitant]
  10. LASIX [Concomitant]
  11. ZEPELIN (FEPRAZONE) EYE DROPS [Concomitant]
  12. TOPSYM (FLUOCINONIDE) CREAM [Concomitant]
  13. BAYASPIRIN (ACETYLSALICYLIC ACID) TABLET [Concomitant]

REACTIONS (7)
  - BLOOD GLUCOSE INCREASED [None]
  - CARDIAC FAILURE [None]
  - CARDIOMEGALY [None]
  - DECREASED APPETITE [None]
  - DIABETES MELLITUS INADEQUATE CONTROL [None]
  - MALAISE [None]
  - OEDEMA PERIPHERAL [None]
